FAERS Safety Report 10926657 (Version 1)
Quarter: 2015Q1

REPORT INFORMATION
  Report Type: Spontaneous
  Country: JP (occurrence: JP)
  Receive Date: 20150318
  Receipt Date: 20150318
  Transmission Date: 20150721
  Serious: Yes (Death, Other)
  Sender: FDA-Public Use
  Company Number: PHJP2015JP003099

PATIENT
  Age: 75 Year
  Sex: Female

DRUGS (4)
  1. LOXOPROFEN SODIUM [Concomitant]
     Active Substance: LOXOPROFEN SODIUM
     Indication: PAIN
     Route: 065
  2. PROCHLORPERAZINE MALEATE. [Concomitant]
     Active Substance: PROCHLORPERAZINE MALEATE
     Indication: NAUSEA
     Route: 065
  3. METASTRON [Concomitant]
     Active Substance: STRONTIUM CHLORIDE SR-89
     Indication: BACK PAIN
     Dosage: 2 MBQ/KG, UNK
     Route: 065
  4. ZOLEDRONATE [Suspect]
     Active Substance: ZOLEDRONIC ACID
     Indication: METASTASES TO BONE
     Dosage: UNK, TIW
     Route: 065

REACTIONS (7)
  - Oesophageal neoplasm [Unknown]
  - Interstitial lung disease [Fatal]
  - Tumour haemorrhage [Unknown]
  - Pneumonia [Fatal]
  - Respiratory distress [Fatal]
  - Dysphagia [Unknown]
  - Anaemia [Unknown]
